FAERS Safety Report 7346406-2 (Version None)
Quarter: 2011Q1

REPORT INFORMATION
  Report Type: 
  Country: None (occurrence: None)
  Receive Date: 20110311
  Receipt Date: 20110302
  Transmission Date: 20110831
  Serious: Yes (Other)
  Sender: FDA-Public Use
  Company Number: US-RB-023201-11

PATIENT
  Sex: Male

DRUGS (1)
  1. SUBOXONE [Suspect]
     Indication: DRUG DEPENDENCE
     Dosage: 12 TO 16 MILLIGRAMS DAILY
     Route: 064
     Dates: start: 20100601, end: 20110117

REACTIONS (4)
  - LUNG DISORDER [None]
  - DRUG EXPOSURE DURING PREGNANCY [None]
  - RESPIRATORY RATE INCREASED [None]
  - DYSPNOEA [None]
